FAERS Safety Report 25390440 (Version 10)
Quarter: 2025Q4

REPORT INFORMATION
  Report Type: Report from Study
  Country: IN (occurrence: IN)
  Receive Date: 20250603
  Receipt Date: 20251230
  Transmission Date: 20260117
  Serious: Yes (Other)
  Sender: PFIZER
  Company Number: IN-PFIZER INC-PV202500054970

PATIENT
  Age: 45 Year
  Sex: Female
  Weight: 58.4 kg

DRUGS (4)
  1. LORLATINIB [Suspect]
     Active Substance: LORLATINIB
     Indication: Non-small cell lung cancer
     Dosage: 100 MG, 1X/DAY
     Route: 048
     Dates: start: 20250427
  2. LORLATINIB [Suspect]
     Active Substance: LORLATINIB
     Dosage: 75 MG, 1X/DAY
     Route: 048
     Dates: start: 20250720
  3. TELMA [TELMISARTAN] [Concomitant]
     Dosage: UNK
  4. ATORVASTATIN [Concomitant]
     Active Substance: ATORVASTATIN
     Dosage: UNK

REACTIONS (63)
  - Dyspnoea at rest [Recovering/Resolving]
  - Cardiac arrest [Recovering/Resolving]
  - Neuropathy peripheral [Not Recovered/Not Resolved]
  - Weight decreased [Recovering/Resolving]
  - Flatulence [Recovering/Resolving]
  - Abdominal distension [Recovering/Resolving]
  - Hyperchlorhydria [Recovering/Resolving]
  - Dyspepsia [Recovering/Resolving]
  - Tension [Recovering/Resolving]
  - Weight increased [Not Recovered/Not Resolved]
  - Asthenia [Recovered/Resolved]
  - Fatigue [Recovering/Resolving]
  - Anxiety [Not Recovered/Not Resolved]
  - Stress [Recovering/Resolving]
  - Blood cholesterol increased [Not Recovered/Not Resolved]
  - Hypersomnia [Recovered/Resolved]
  - Peripheral swelling [Recovering/Resolving]
  - Swelling face [Recovered/Resolved]
  - Cough [Not Recovered/Not Resolved]
  - Vaginal haemorrhage [Recovering/Resolving]
  - Mood swings [Recovering/Resolving]
  - Menstrual disorder [Recovering/Resolving]
  - Full blood count abnormal [Recovering/Resolving]
  - Lipids increased [Recovering/Resolving]
  - Renal function test abnormal [Recovering/Resolving]
  - Blood iron decreased [Recovering/Resolving]
  - Blood creatinine decreased [Recovering/Resolving]
  - Blood sodium decreased [Recovering/Resolving]
  - Hypertension [Not Recovered/Not Resolved]
  - Headache [Not Recovered/Not Resolved]
  - Vision blurred [Recovering/Resolving]
  - Depression [Recovering/Resolving]
  - Chest pain [Not Recovered/Not Resolved]
  - Sleep disorder [Not Recovered/Not Resolved]
  - Nervousness [Recovering/Resolving]
  - Menstruation delayed [Recovering/Resolving]
  - Joint range of motion decreased [Recovered/Resolved]
  - Visual impairment [Recovered/Resolved]
  - Snoring [Recovering/Resolving]
  - Nocturnal dyspnoea [Recovering/Resolving]
  - Choking sensation [Recovering/Resolving]
  - Vitamin D decreased [Unknown]
  - Vitamin B complex deficiency [Unknown]
  - Blood magnesium decreased [Unknown]
  - Pain in extremity [Not Recovered/Not Resolved]
  - Paraesthesia [Not Recovered/Not Resolved]
  - Hypoaesthesia [Not Recovered/Not Resolved]
  - Electric shock sensation [Not Recovered/Not Resolved]
  - Musculoskeletal stiffness [Not Recovered/Not Resolved]
  - Mobility decreased [Not Recovered/Not Resolved]
  - Blood pressure fluctuation [Not Recovered/Not Resolved]
  - Pyrexia [Recovered/Resolved]
  - Oropharyngeal pain [Not Recovered/Not Resolved]
  - Heart rate abnormal [Not Recovered/Not Resolved]
  - Muscle strain [Not Recovered/Not Resolved]
  - Muscle swelling [Not Recovered/Not Resolved]
  - Sensory disturbance [Not Recovered/Not Resolved]
  - Menstruation irregular [Not Recovered/Not Resolved]
  - Ligament rupture [Recovering/Resolving]
  - Joint swelling [Recovering/Resolving]
  - Joint injury [Recovering/Resolving]
  - Memory impairment [Not Recovered/Not Resolved]
  - Disturbance in attention [Not Recovered/Not Resolved]

NARRATIVE: CASE EVENT DATE: 20250101
